FAERS Safety Report 18540281 (Version 1)
Quarter: 2020Q4

REPORT INFORMATION
  Report Type: Spontaneous
  Country: US (occurrence: US)
  Receive Date: 20201124
  Receipt Date: 20201124
  Transmission Date: 20210114
  Serious: Yes (Hospitalization)
  Sender: FDA-Public Use
  Company Number: None

PATIENT
  Age: 26 Year
  Sex: Male

DRUGS (4)
  1. VOTRIENT [Suspect]
     Active Substance: PAZOPANIB HYDROCHLORIDE
     Indication: SOFT TISSUE SARCOMA
     Route: 048
     Dates: start: 20201006
  2. DEXAMETHASON TAB 2MG [Concomitant]
     Dates: start: 20201027
  3. LEVETIRACETA TAB 1000MG [Concomitant]
     Dates: start: 20201021
  4. ALBUTEROL AER HFA [Concomitant]
     Dates: start: 20201111

REACTIONS (1)
  - Hospitalisation [None]

NARRATIVE: CASE EVENT DATE: 20201101
